FAERS Safety Report 5303371-7 (Version None)
Quarter: 2007Q2

REPORT INFORMATION
  Report Type: 
  Country: None (occurrence: None)
  Receive Date: 20070420
  Receipt Date: 20070412
  Transmission Date: 20071010
  Serious: Yes (Hospitalization)
  Sender: FDA-Public Use
  Company Number: CA-JNJFOC-20070402934

PATIENT
  Sex: Male

DRUGS (2)
  1. DURAGESIC-100 [Suspect]
     Indication: ANGINA PECTORIS
     Route: 065
  2. DURAGESIC-100 [Suspect]
     Indication: ANGINA UNSTABLE
     Route: 065

REACTIONS (1)
  - MYOCARDIAL INFARCTION [None]
